FAERS Safety Report 8761900 (Version 1)
Quarter: 2012Q4

REPORT INFORMATION
  Report Type: 
  Country: JP (occurrence: JP)
  Receive Date: 20120830
  Receipt Date: 20120830
  Transmission Date: 20130627
  Serious: Yes (Other)
  Sender: FDA-Public Use
  Company Number: JP-MILLENNIUM PHARMACEUTICALS, INC.-2012-05982

PATIENT

DRUGS (4)
  1. VELCADE [Suspect]
     Indication: LEUKAEMIA PLASMACYTIC
     Dosage: 1.3 mg/m2, Cyclic
  2. VELCADE [Suspect]
     Dosage: 1 mg/m2, Cyclic
  3. ADRIAMYCIN                         /00330901/ [Suspect]
     Indication: LEUKAEMIA PLASMACYTIC
     Dosage: 1.3 mg/m2, Cyclic
  4. DEXAMETHASONE [Suspect]
     Indication: LEUKAEMIA PLASMACYTIC
     Dosage: 40 mg, Cyclic

REACTIONS (2)
  - Graft versus host disease [Unknown]
  - Blood creatinine increased [Unknown]
